FAERS Safety Report 4479013-X (Version None)
Quarter: 2004Q4

REPORT INFORMATION
  Report Type: 
  Country: None (occurrence: None)
  Receive Date: 20041015
  Receipt Date: 20040930
  Transmission Date: 20050328
  Serious: Yes (Hospitalization, Other)
  Sender: FDA-Public Use
  Company Number: 2004-DE-05129BY

PATIENT
  Age: 86 Year
  Sex: Female

DRUGS (6)
  1. KINZALMONO (TELMISARTAN) [Suspect]
     Indication: HYPERTENSION
     Dosage: 80 MG PO
     Route: 048
     Dates: start: 20040308, end: 20040501
  2. TILDIEM RETARD (DILTIAZEM HYDROCHLORIDE) [Concomitant]
  3. SOTALOL HCL [Concomitant]
  4. NAPROSYN [Concomitant]
  5. OMEPRAZOLE [Concomitant]
  6. INDAPAMIDE [Concomitant]

REACTIONS (5)
  - BLOOD PRESSURE SYSTOLIC INCREASED [None]
  - BRADYARRHYTHMIA [None]
  - BUNDLE BRANCH BLOCK LEFT [None]
  - BUNDLE BRANCH BLOCK RIGHT [None]
  - TACHYARRHYTHMIA [None]
